FAERS Safety Report 8002972-5 (Version None)
Quarter: 2011Q4

REPORT INFORMATION
  Report Type: 
  Country: None (occurrence: None)
  Receive Date: 20111222
  Receipt Date: 20110617
  Transmission Date: 20120403
  Serious: No
  Sender: FDA-Public Use
  Company Number: US-GLAXOSMITHKLINE-A0931873A

PATIENT
  Age: 72 Year
  Sex: Male

DRUGS (4)
  1. BENICAR [Concomitant]
  2. ALLOPURINOL [Concomitant]
  3. AVODART [Suspect]
     Indication: BENIGN PROSTATIC HYPERPLASIA
     Dosage: 1CAP PER DAY
     Route: 048
     Dates: start: 20100101
  4. COZAAR [Concomitant]

REACTIONS (3)
  - FATIGUE [None]
  - GYNAECOMASTIA [None]
  - NIGHT SWEATS [None]
